FAERS Safety Report 6738036-8 (Version None)
Quarter: 2010Q2

REPORT INFORMATION
  Report Type: 
  Country: None (occurrence: None)
  Receive Date: 20100519
  Receipt Date: 20100507
  Transmission Date: 20101027
  Serious: Yes (Other)
  Sender: FDA-Public Use
  Company Number: 2010SP026342

PATIENT
  Age: 17 Year
  Sex: Female
  Weight: 83.9154 kg

DRUGS (1)
  1. NUVARING [Suspect]
     Indication: CONTRACEPTION
     Dosage: 1 DF;VAG
     Route: 067
     Dates: start: 20100421

REACTIONS (5)
  - HEADACHE [None]
  - NAUSEA [None]
  - OCULAR ICTERUS [None]
  - THROMBOSIS [None]
  - VOMITING [None]
